FAERS Safety Report 15090467 (Version 2)
Quarter: 2018Q3

REPORT INFORMATION
  Report Type: Spontaneous
  Country: FR (occurrence: FR)
  Receive Date: 20180629
  Receipt Date: 20180823
  Transmission Date: 20181010
  Serious: Yes (Hospitalization, Other)
  Sender: FDA-Public Use
  Company Number: FR-GLAXOSMITHKLINE-FR2018111535

PATIENT
  Age: 84 Year
  Sex: Female
  Weight: 73 kg

DRUGS (5)
  1. BIPRETERAX [Interacting]
     Active Substance: INDAPAMIDE\PERINDOPRIL
     Indication: HYPERTENSION
     Dosage: UNKNOWN
     Route: 048
  2. CORTANCYL [Interacting]
     Active Substance: PREDNISONE
     Indication: ARTHRALGIA
     Dosage: 40 MG, QD
     Route: 048
     Dates: start: 20180502, end: 20180513
  3. BIPRETERAX [Interacting]
     Active Substance: INDAPAMIDE\PERINDOPRIL
     Dosage: UNK
     Route: 048
     Dates: start: 20180523
  4. VOLTARENE EMULGEL 1% [Suspect]
     Active Substance: DICLOFENAC DIETHYLAMINE
     Indication: ARTHRALGIA
     Dosage: UNKNOWN
     Route: 003
     Dates: start: 20180415, end: 20180425
  5. NAPROXEN SODIUM. [Interacting]
     Active Substance: NAPROXEN SODIUM
     Indication: ARTHRALGIA
     Dosage: UNKNOWN
     Route: 048
     Dates: start: 20180410, end: 20180413

REACTIONS (5)
  - Dehydration [Recovered/Resolved]
  - Malaise [Recovered/Resolved]
  - Drug interaction [Unknown]
  - Diarrhoea [Recovered/Resolved]
  - Rectal haemorrhage [Recovered/Resolved]

NARRATIVE: CASE EVENT DATE: 20180513
